FAERS Safety Report 8612414-4 (Version None)
Quarter: 2012Q3

REPORT INFORMATION
  Report Type: 
  Country: None (occurrence: None)
  Receive Date: 20120822
  Receipt Date: 20120816
  Transmission Date: 20120928
  Serious: Yes (Hospitalization)
  Sender: FDA-Public Use
  Company Number: CH-FRI-1000030602

PATIENT
  Sex: Female

DRUGS (16)
  1. SINTROM [Concomitant]
     Indication: ATRIAL FLUTTER
  2. CORDARONE [Concomitant]
     Indication: ATRIAL FLUTTER
  3. TENORMIN [Concomitant]
     Indication: HYPERTENSION
     Dosage: 25 MG
     Route: 048
  4. PAMIDRONATE DISODIUM [Concomitant]
     Indication: CALCIUM METABOLISM DISORDER
     Dates: start: 20120411, end: 20120411
  5. ZOLPIDEM [Suspect]
     Indication: INSOMNIA
     Dosage: 10 MG
     Route: 048
     Dates: start: 20020101, end: 20120405
  6. LEVOFLOXACIN [Concomitant]
     Indication: PNEUMONIA BACTERIAL
     Route: 048
     Dates: end: 20120421
  7. SINTROM [Concomitant]
     Indication: ATRIAL FIBRILLATION
     Route: 048
  8. CORDARONE [Concomitant]
     Indication: ATRIAL FIBRILLATION
     Dosage: 100 MG
     Route: 048
  9. NITROGLYCERIN [Concomitant]
     Indication: ANGINA PECTORIS
     Route: 048
  10. LEVOTHYROXINE SODIUM [Concomitant]
     Indication: HYPOTHYROIDISM
     Dosage: 0.075 MG
     Route: 048
  11. ROCEPHIN [Concomitant]
     Indication: URINARY TRACT INFECTION
     Dosage: 2 G
     Route: 042
     Dates: start: 20120409, end: 20120411
  12. ESCITALOPRAM [Suspect]
     Dosage: 10 MG
     Dates: start: 20120411
  13. ZYPREXA [Suspect]
     Indication: PRODUCT USED FOR UNKNOWN INDICATION
     Dosage: 2.5 MG
     Route: 048
     Dates: start: 20020101, end: 20120405
  14. ACETAMINOPHEN [Concomitant]
     Indication: PAIN
     Route: 042
  15. ESCITALOPRAM [Suspect]
     Indication: DEPRESSION
     Dosage: 10 MG
     Route: 048
     Dates: start: 20020101, end: 20120405
  16. PIPERACILLIN AND TAZOBACTAM [Concomitant]
     Indication: PNEUMONIA BACTERIAL
     Dates: start: 20120411

REACTIONS (6)
  - DELIRIUM [None]
  - ENCEPHALOPATHY [None]
  - HYPERKINESIA [None]
  - EXTRAPYRAMIDAL DISORDER [None]
  - TARDIVE DYSKINESIA [None]
  - TREMOR [None]
